FAERS Safety Report 9245184 (Version 1)
Quarter: 2013Q1

REPORT INFORMATION
  Report Type: Spontaneous
  Country: US (occurrence: None)
  Receive Date: 20121130
  Receipt Date: 20121130
  Transmission Date: 20140127
  Serious: Yes (Hospitalization)
  Sender: FDA-Public Use
  Company Number: 339078

PATIENT
  Age: 11 Year
  Sex: Female
  Weight: 43.1 kg

DRUGS (1)
  1. NOVOLOG [Suspect]
     Indication: TYPE 1 DIABETES MELLITUS
     Route: 058
     Dates: start: 20110730, end: 20111102

REACTIONS (2)
  - Incorrect product storage [None]
  - Blood glucose increased [None]
